FAERS Safety Report 9144946 (Version 3)
Quarter: 2013Q2

REPORT INFORMATION
  Report Type: Spontaneous
  Country: US (occurrence: US)
  Receive Date: 20130307
  Receipt Date: 20130416
  Transmission Date: 20140414
  Serious: Yes (Hospitalization)
  Sender: FDA-Public Use
  Company Number: US-BIOGENIDEC-2013BI020702

PATIENT
  Sex: Male

DRUGS (1)
  1. TYSABRI [Suspect]
     Indication: MULTIPLE SCLEROSIS
     Route: 042
     Dates: start: 20070912

REACTIONS (7)
  - Hepatic enzyme increased [Recovered/Resolved]
  - Movement disorder [Unknown]
  - Tremor [Unknown]
  - Hypoaesthesia [Unknown]
  - Memory impairment [Unknown]
  - Stress [Unknown]
  - Device issue [Unknown]
